FAERS Safety Report 14815536 (Version 1)
Quarter: 2018Q2

REPORT INFORMATION
  Report Type: Spontaneous
  Country: US (occurrence: US)
  Receive Date: 20180417
  Receipt Date: 20180417
  Transmission Date: 20180711
  Serious: Yes (Disabling)
  Sender: FDA-Public Use
  Company Number: None

PATIENT
  Age: 85 Year
  Sex: Female
  Weight: 47.5 kg

DRUGS (5)
  1. CEFEPIME [Suspect]
     Active Substance: CEFEPIME HYDROCHLORIDE
     Indication: BACTERAEMIA
     Route: 041
     Dates: start: 20180409, end: 20180413
  2. SERTRALINE 25 MG PEG EVERY 24 HOURS [Concomitant]
     Dates: start: 20180407, end: 20180413
  3. SERTRALINE [Suspect]
     Active Substance: SERTRALINE HYDROCHLORIDE
     Dosage: OTHER ROUTE:VIA PEG TUBE?
  4. CEFEPIME 1000 MG IV EVERY 12 HOURS [Concomitant]
     Dates: start: 20180409, end: 20180413
  5. CEFEPIME [Suspect]
     Active Substance: CEFEPIME HYDROCHLORIDE
     Indication: URINARY TRACT INFECTION
     Route: 041
     Dates: start: 20180409, end: 20180413

REACTIONS (5)
  - Neurotoxicity [None]
  - Mental status changes [None]
  - Depressed level of consciousness [None]
  - Muscle twitching [None]
  - Encephalopathy [None]

NARRATIVE: CASE EVENT DATE: 20180413
